FAERS Safety Report 5850302-7 (Version None)
Quarter: 2008Q3

REPORT INFORMATION
  Report Type: 
  Country: None (occurrence: None)
  Receive Date: 20080731
  Receipt Date: 20080407
  Transmission Date: 20090109
  Serious: No
  Sender: FDA-Public Use
  Company Number: US200804001966

PATIENT
  Age: 69 Year
  Sex: Female
  Weight: 122.4 kg

DRUGS (12)
  1. BYETTA [Suspect]
     Indication: TYPE 2 DIABETES MELLITUS
     Dosage: 5 UG, DAILY (1/D), SUBCUTANEOUS
     Route: 058
     Dates: start: 20080406, end: 20080406
  2. EXENATIDE PEN, DISPOSABLE DEVICE (EXENATIDE PEN) PEN,DISPOSABLE [Concomitant]
  3. METFORMIN HCL [Concomitant]
  4. GLIMEPIRIDE [Concomitant]
  5. ASPIRIN [Concomitant]
  6. LEVOTHYROXINE SODIUM [Concomitant]
  7. SIMVASTATIN [Concomitant]
  8. FOSINOPRIL SODIUM [Concomitant]
  9. AMLODIPINE BESYLATE [Concomitant]
  10. COENZYME Q10 [Concomitant]
  11. CALCIUM (CALCIUM) [Concomitant]
  12. MAGNESIUM (MAGNESIUM) [Concomitant]

REACTIONS (5)
  - DYSPEPSIA [None]
  - INFLUENZA [None]
  - NASAL CONGESTION [None]
  - NASOPHARYNGITIS [None]
  - NAUSEA [None]
